FAERS Safety Report 6604660-6 (Version None)
Quarter: 2010Q1

REPORT INFORMATION
  Report Type: 
  Country: None (occurrence: None)
  Receive Date: 20100226
  Receipt Date: 20100223
  Transmission Date: 20100710
  Serious: Yes (Hospitalization)
  Sender: FDA-Public Use
  Company Number: AU-ROCHE-662893

PATIENT
  Sex: Female
  Weight: 129.8 kg

DRUGS (5)
  1. BEVACIZUMAB [Suspect]
     Indication: BREAST CANCER
     Dosage: FORM: INFUSION (PER PROTOCOL), LAST DOSE PRIOR TO SAE: 30 SEPTEMBER 2009.
     Route: 042
     Dates: start: 20090415
  2. EPIRUBICIN [Suspect]
     Indication: BREAST CANCER
     Route: 065
  3. CYCLOPHOSPHAMIDE [Suspect]
     Indication: BREAST CANCER
     Route: 065
  4. 5-FU [Suspect]
     Indication: BREAST CANCER
     Route: 065
  5. NEXIUM [Concomitant]
     Dates: start: 20050101

REACTIONS (1)
  - PANCREATITIS [None]
